FAERS Safety Report 9667608 (Version 1)
Quarter: 2013Q4

REPORT INFORMATION
  Report Type: Spontaneous
  Country: IE (occurrence: IE)
  Receive Date: 20131104
  Receipt Date: 20131104
  Transmission Date: 20140711
  Serious: Yes (Death)
  Sender: FDA-Public Use
  Company Number: GB-BRISTOL-MYERS SQUIBB COMPANY-19711795

PATIENT
  Age: 46 Year
  Sex: 0

DRUGS (13)
  1. YERVOY [Suspect]
     Dates: start: 20130916, end: 20130926
  2. STILNOCT [Concomitant]
  3. MORPHINE SULFATE [Concomitant]
  4. PREGABALIN [Concomitant]
  5. MOVICOL [Concomitant]
  6. METOCLOPRAMIDE [Concomitant]
  7. LIDOCAINE [Concomitant]
     Dosage: LIDOCAINE 5%
  8. VENLAFAXINE HCL [Concomitant]
  9. TAZOCIN [Concomitant]
  10. CO-AMOXICLAV [Concomitant]
  11. SEVREDOL [Concomitant]
  12. PARACETAMOL [Concomitant]
  13. CYCLIZINE [Concomitant]

REACTIONS (1)
  - Death [Fatal]
